FAERS Safety Report 9857556 (Version 1)
Quarter: 2014Q1

REPORT INFORMATION
  Report Type: Report from Study
  Country: BR (occurrence: BR)
  Receive Date: 20140131
  Receipt Date: 20140131
  Transmission Date: 20141002
  Serious: Yes (Hospitalization, Other)
  Sender: FDA-Public Use
  Company Number: PHHY2014BR009194

PATIENT
  Sex: Female
  Weight: 63 kg

DRUGS (3)
  1. DIOVAN [Suspect]
     Indication: HYPERTENSION
     Dosage: 2 DF (80MG) (1 TABLET IN THE MORNING AND 1 TABLET IN THE NIGHT)
     Route: 048
     Dates: end: 20140116
  2. SELOZOK [Concomitant]
     Dosage: 50 MG, UNK
  3. ASPIRIN [Concomitant]
     Indication: CARDIAC DISORDER
     Dosage: UNK UKN, UNK

REACTIONS (2)
  - Chest pain [Recovering/Resolving]
  - Hypertension [Recovering/Resolving]
